FAERS Safety Report 10967919 (Version 1)
Quarter: 2015Q1

REPORT INFORMATION
  Report Type: Spontaneous
  Country: CA (occurrence: CA)
  Receive Date: 20150330
  Receipt Date: 20150330
  Transmission Date: 20150721
  Serious: Yes (Other)
  Sender: FDA-Public Use
  Company Number: CA-GLAXOSMITHKLINE-CA2015GSK040295

PATIENT
  Age: 69 Year
  Sex: Female

DRUGS (4)
  1. VENTOLIN [Concomitant]
     Active Substance: ALBUTEROL SULFATE
     Indication: ASTHMA
  2. ADVAIR DISKUS [Suspect]
     Active Substance: FLUTICASONE PROPIONATE\SALMETEROL XINAFOATE
     Indication: ASTHMA
     Dosage: 1 PUFF(S), BID
     Dates: start: 201410
  3. BREO ELLIPTA [Suspect]
     Active Substance: FLUTICASONE FUROATE\VILANTEROL TRIFENATATE
     Indication: DYSPNOEA
     Dosage: UNK
     Dates: start: 201501
  4. THYROID MEDICATION [Concomitant]
     Active Substance: UNSPECIFIED INGREDIENT

REACTIONS (9)
  - Angina pectoris [Unknown]
  - Feeling abnormal [Unknown]
  - Dyspnoea [Unknown]
  - Chest discomfort [Unknown]
  - Dysphonia [Unknown]
  - Lip discolouration [Unknown]
  - Asthma [Recovered/Resolved]
  - Syncope [Unknown]
  - Heart rate increased [Unknown]

NARRATIVE: CASE EVENT DATE: 20150318
